FAERS Safety Report 5277443-X (Version None)
Quarter: 2007Q1

REPORT INFORMATION
  Report Type: 
  Country: None (occurrence: None)
  Receive Date: 20070327
  Receipt Date: 20070319
  Transmission Date: 20070707
  Serious: Yes (Death)
  Sender: FDA-Public Use
  Company Number: US-BAXTER-2007BH003053

PATIENT
  Age: 88 Year
  Sex: Male

DRUGS (4)
  1. HEPARIN SODIUM [Suspect]
     Indication: DRUG USE FOR UNKNOWN INDICATION
     Route: 042
     Dates: start: 20070319, end: 20070319
  2. HEPARIN SODIUM [Suspect]
     Route: 042
     Dates: start: 20070319
  3. REGLAN [Concomitant]
     Indication: NAUSEA
     Dosage: DOSE UNIT:UNKNOWN
     Route: 065
     Dates: start: 20070319
  4. COUMADIN [Concomitant]
     Indication: DRUG USE FOR UNKNOWN INDICATION
     Dosage: DOSE UNIT:UNKNOWN
     Route: 048
     Dates: start: 20070316

REACTIONS (5)
  - ACCIDENTAL OVERDOSE [None]
  - CARDIO-RESPIRATORY ARREST [None]
  - DEATH [None]
  - DEVICE FAILURE [None]
  - SUBARACHNOID HAEMORRHAGE [None]
